FAERS Safety Report 25934073 (Version 1)
Quarter: 2025Q4

REPORT INFORMATION
  Report Type: Spontaneous
  Country: US (occurrence: None)
  Receive Date: 20251017
  Receipt Date: 20251017
  Transmission Date: 20260118
  Serious: Yes (Hospitalization)
  Sender: FDA-CTU
  Company Number: None

PATIENT
  Age: 60 Year
  Sex: Male
  Weight: 51 kg

DRUGS (2)
  1. TAXOL [Suspect]
     Active Substance: PACLITAXEL
     Dates: end: 20250911
  2. RAMUCIRUMAB [Suspect]
     Active Substance: RAMUCIRUMAB
     Dates: end: 20250911

REACTIONS (4)
  - Weight decreased [None]
  - Hypophagia [None]
  - Hypotension [None]
  - Therapy non-responder [None]

NARRATIVE: CASE EVENT DATE: 20251011
